FAERS Safety Report 8446917-2 (Version None)
Quarter: 2012Q2

REPORT INFORMATION
  Report Type: 
  Country: None (occurrence: None)
  Receive Date: 20120323
  Receipt Date: 20110907
  Transmission Date: 20120825
  Serious: Yes (Other)
  Sender: FDA-Public Use
  Company Number: 163-21880-11091097

PATIENT
  Age: 82 Year
  Sex: Female

DRUGS (7)
  1. SODIUM POLYSTYRENE SULFONATE (SODIUM POLYSTYRENE SULFONATE) [Concomitant]
  2. FISH OIL (FISH OIL) [Concomitant]
  3. BYSTOLIC [Concomitant]
  4. REVLIMID [Suspect]
     Indication: AMYLOIDOSIS
     Dosage: 5 MG, X28, PO
     Route: 048
     Dates: start: 20110616
  5. STOOL SOFTENER (DOCUSATE SODIUM) [Concomitant]
  6. ACETAMINOPHEN [Concomitant]
  7. FUROSEMIDE [Concomitant]

REACTIONS (1)
  - RENAL FAILURE [None]
